FAERS Safety Report 12390022 (Version 6)
Quarter: 2018Q2

REPORT INFORMATION
  Report Type: Report from Study
  Country: BE (occurrence: BE)
  Receive Date: 20160520
  Receipt Date: 20180413
  Transmission Date: 20180711
  Serious: Yes (Hospitalization, Other)
  Sender: FDA-Public Use
  Company Number: BE-AMGEN-BELCT2016063966

PATIENT
  Age: 52 Year
  Sex: Female
  Weight: 62 kg

DRUGS (5)
  1. TRAMETINIB [Suspect]
     Active Substance: TRAMETINIB
     Indication: COLORECTAL CANCER
     Dosage: 2 MG, BID
     Route: 048
     Dates: start: 20150617
  2. ONDANSETRON BRAUN [Concomitant]
     Indication: NAUSEA
     Dosage: 2 ML, AS NECESSARY (PRN)
     Dates: start: 20150718, end: 20150721
  3. DABRAFENIB [Suspect]
     Active Substance: DABRAFENIB
     Indication: COLORECTAL CANCER
     Dosage: UNK
     Route: 048
  4. PANITUMUMAB [Suspect]
     Active Substance: PANITUMUMAB
     Indication: COLORECTAL CANCER
     Dosage: UNK
     Route: 065
  5. CLAMOXYL (AMOXICILLIN) [Concomitant]
     Active Substance: AMOXICILLIN
     Indication: PROPHYLAXIS
     Dosage: 1 G, Q96H (Q4D)
     Route: 042
     Dates: start: 20150716, end: 20150722

REACTIONS (2)
  - Ureteric obstruction [Recovered/Resolved]
  - Large intestinal obstruction [Recovered/Resolved]

NARRATIVE: CASE EVENT DATE: 20150711
